FAERS Safety Report 10566082 (Version 3)
Quarter: 2015Q1

REPORT INFORMATION
  Report Type: Spontaneous
  Country: US (occurrence: US)
  Receive Date: 20141105
  Receipt Date: 20150202
  Transmission Date: 20150720
  Serious: Yes (Death, Hospitalization, Other)
  Sender: FDA-Public Use
  Company Number: US-PFIZER INC-2014304502

PATIENT
  Age: 83 Year
  Sex: Male

DRUGS (3)
  1. REVATIO [Suspect]
     Active Substance: SILDENAFIL CITRATE
     Indication: PULMONARY HYPERTENSION
     Dosage: UNK
  2. COUMADIN [Concomitant]
     Active Substance: WARFARIN SODIUM
     Dosage: UNK
     Dates: start: 1989
  3. LASIX [Concomitant]
     Active Substance: FUROSEMIDE
     Dosage: UNK, AS NEEDED

REACTIONS (4)
  - Fluid retention [Unknown]
  - Intra-abdominal haemorrhage [Unknown]
  - Dysuria [Unknown]
  - Renal failure [Fatal]
